FAERS Safety Report 24766448 (Version 4)
Quarter: 2025Q1

REPORT INFORMATION
  Report Type: Spontaneous
  Country: US (occurrence: US)
  Receive Date: 20241223
  Receipt Date: 20250225
  Transmission Date: 20250408
  Serious: No
  Sender: MERCK SHARP & DOHME LLC
  Company Number: US-PFIZER INC-PV202400128424

PATIENT
  Age: 69 Year
  Sex: Female
  Weight: 67.392 kg

DRUGS (1)
  1. TUCATINIB [Suspect]
     Active Substance: TUCATINIB
     Indication: Breast cancer female
     Dosage: DOSE DESCRIPTION : 300 MG, 2X/DAY?DAILY DOSE : 600 MILLIGRAM?CONCENTRATION: 150 MILLIGRAM
     Route: 048

REACTIONS (1)
  - Weight decreased [Not Recovered/Not Resolved]
